FAERS Safety Report 16763646 (Version 4)
Quarter: 2019Q4

REPORT INFORMATION
  Report Type: Spontaneous
  Country: US (occurrence: US)
  Receive Date: 20190902
  Receipt Date: 20191114
  Transmission Date: 20200122
  Serious: Yes (Death, Hospitalization, Other)
  Sender: FDA-Public Use
  Company Number: US-TAKEDA-2019TUS050374

PATIENT
  Age: 33 Year
  Sex: Female

DRUGS (1)
  1. BRIGATINIB [Suspect]
     Active Substance: BRIGATINIB
     Indication: LUNG NEOPLASM MALIGNANT
     Dosage: 180 MILLIGRAM, QD
     Route: 048
     Dates: start: 201905, end: 20190824

REACTIONS (4)
  - Lung neoplasm malignant [Fatal]
  - Multiple organ dysfunction syndrome [Fatal]
  - Blood pressure increased [Unknown]
  - Pneumonia [Fatal]

NARRATIVE: CASE EVENT DATE: 20190824
